FAERS Safety Report 25146180 (Version 1)
Quarter: 2025Q2

REPORT INFORMATION
  Report Type: Spontaneous
  Country: FR (occurrence: FR)
  Receive Date: 20250401
  Receipt Date: 20250401
  Transmission Date: 20250717
  Serious: Yes (Other)
  Sender: BAYER
  Company Number: None

PATIENT
  Age: 76 Year
  Sex: Male
  Weight: 58 kg

DRUGS (3)
  1. MOXIFLOXACIN HYDROCHLORIDE [Interacting]
     Active Substance: MOXIFLOXACIN HYDROCHLORIDE
     Indication: Atypical mycobacterial infection
     Dosage: 400 MG, QD
     Route: 048
     Dates: start: 20240601, end: 202411
  2. ETHAMBUTOL HYDROCHLORIDE [Interacting]
     Active Substance: ETHAMBUTOL HYDROCHLORIDE
     Indication: Atypical mycobacterial infection
     Dosage: 500 MG, QOD
     Route: 048
     Dates: start: 20240601, end: 202411
  3. ZITHROMAX [Interacting]
     Active Substance: AZITHROMYCIN DIHYDRATE
     Indication: Atypical mycobacterial infection
     Dosage: 250 MG, QD
     Route: 048
     Dates: start: 20240601, end: 202411

REACTIONS (2)
  - Gastrointestinal disorder [Recovered/Resolved]
  - Electrocardiogram QT prolonged [Recovered/Resolved]

NARRATIVE: CASE EVENT DATE: 20241101
